FAERS Safety Report 23814159 (Version 1)
Quarter: 2024Q2

REPORT INFORMATION
  Report Type: Spontaneous
  Country: US (occurrence: US)
  Receive Date: 20240503
  Receipt Date: 20240503
  Transmission Date: 20240716
  Serious: No
  Sender: FDA-Public Use
  Company Number: US-HALEON-2169226

PATIENT
  Age: 65 Year
  Sex: Male

DRUGS (1)
  1. TUMS SMOOTHIES [Suspect]
     Active Substance: CALCIUM CARBONATE
     Indication: Product used for unknown indication
     Dosage: EXPDATE:202509
     Route: 048

REACTIONS (2)
  - Oesophageal discomfort [Not Recovered/Not Resolved]
  - Wrong technique in product usage process [Unknown]
